FAERS Safety Report 5485935-3 (Version None)
Quarter: 2007Q4

REPORT INFORMATION
  Report Type: 
  Country: None (occurrence: None)
  Receive Date: 20071015
  Receipt Date: 20071012
  Transmission Date: 20080405
  Serious: Yes (Other)
  Sender: FDA-Public Use
  Company Number: US-SHR-US-2007-016363

PATIENT
  Age: 50 Year
  Sex: Female
  Weight: 68 kg

DRUGS (4)
  1. ANGELIQ [Suspect]
     Dosage: 1 TAB(S), 1X/DAY
     Route: 048
     Dates: start: 20070401
  2. LISINOPRIL [Concomitant]
     Dosage: 40 MG, 1X/DAY
  3. ASPIRIN [Concomitant]
     Dosage: 81 MG, 1X/DAY
  4. NORETHRIDONE [Concomitant]
     Dosage: UNK, 1X/DAY

REACTIONS (1)
  - FEMALE PATTERN BALDNESS [None]
